FAERS Safety Report 8582912 (Version 2)
Quarter: 2012Q4

REPORT INFORMATION
  Report Type: 
  Country: IT (occurrence: IT)
  Receive Date: 20120529
  Receipt Date: 20121009
  Transmission Date: 20130627
  Serious: Yes (Other)
  Sender: FDA-Public Use
  Company Number: IT-PFIZER INC-2012126585

PATIENT
  Age: 73 Year
  Sex: Male

DRUGS (7)
  1. SUTENT [Suspect]
     Indication: RENAL CELL CARCINOMA
     Dosage: 50 mg, 1x/day
     Route: 048
     Dates: start: 20080404, end: 20080502
  2. MICARDIS [Concomitant]
     Dosage: 80 mg, UNK
  3. METFORMIN [Concomitant]
     Dosage: 1 DF, 3x/day
  4. IGROTON [Concomitant]
     Dosage: 25 mg, UNK
  5. ZYLORIC [Concomitant]
     Dosage: 100 mg, UNK
  6. AMLODIPINE [Concomitant]
     Dosage: 1 DF
  7. EUCERIN CREME [Concomitant]

REACTIONS (6)
  - Hypertensive crisis [Recovered/Resolved with Sequelae]
  - Thrombocytopenia [Recovered/Resolved with Sequelae]
  - Mucosal inflammation [Recovered/Resolved with Sequelae]
  - Epistaxis [Recovered/Resolved with Sequelae]
  - Aphthous stomatitis [Unknown]
  - Infection [Unknown]
